FAERS Safety Report 9597869 (Version 1)
Quarter: 2013Q4

REPORT INFORMATION
  Report Type: Spontaneous
  Country: US (occurrence: US)
  Receive Date: 20131004
  Receipt Date: 20131004
  Transmission Date: 20140711
  Serious: No
  Sender: FDA-Public Use
  Company Number: US-AMGEN-USASP2013021719

PATIENT
  Age: 46 Year
  Sex: Male
  Weight: 126.98 kg

DRUGS (8)
  1. ENBREL [Suspect]
     Indication: PRODUCT USED FOR UNKNOWN INDICATION
     Dosage: 50 MG, ONCE WEEKLY
  2. PREDNISONE [Concomitant]
     Dosage: 5 MG, UNK
  3. LEVOTHYROXIN [Concomitant]
     Dosage: 100 MUG, UNK
  4. ASPIRIN [Concomitant]
     Dosage: 81 MG, UNK
  5. LUNESTA [Concomitant]
     Dosage: 3 MG, UNK
  6. FOLIC ACID [Concomitant]
     Dosage: UNK
  7. CLONAZEPAM [Concomitant]
     Dosage: 2 MG, UNK
  8. METHOTREXATE [Concomitant]
     Dosage: 2.5 MG, UNK

REACTIONS (1)
  - Gastroenteritis viral [Unknown]
